FAERS Safety Report 17001330 (Version 1)
Quarter: 2019Q4

REPORT INFORMATION
  Report Type: Spontaneous
  Country: US (occurrence: US)
  Receive Date: 20191106
  Receipt Date: 20191106
  Transmission Date: 20200122
  Serious: No
  Sender: FDA-Public Use
  Company Number: US-PFIZER INC-2019463006

PATIENT
  Sex: Female

DRUGS (1)
  1. PROCARDIA XL [Suspect]
     Active Substance: NIFEDIPINE
     Indication: CARDIAC ARREST
     Dosage: 30 MG, UNK
     Dates: start: 2006

REACTIONS (3)
  - Product use in unapproved indication [Unknown]
  - Off label use [Unknown]
  - Anger [Unknown]

NARRATIVE: CASE EVENT DATE: 2006
